FAERS Safety Report 4561785-7 (Version None)
Quarter: 2005Q1

REPORT INFORMATION
  Report Type: 
  Country: None (occurrence: None)
  Receive Date: 20050125
  Receipt Date: 20050110
  Transmission Date: 20050727
  Serious: Yes (Hospitalization, Other)
  Sender: FDA-Public Use
  Company Number: 2005014731

PATIENT
  Sex: Female
  Weight: 66.6788 kg

DRUGS (4)
  1. BEXTRA [Suspect]
     Indication: OSTEOARTHRITIS
     Dosage: 20 MG 4 IN 1 D, ORAL
     Route: 048
     Dates: start: 20020601
  2. BEXTRA [Suspect]
     Indication: SPONDYLITIS
     Dosage: 20 MG 4 IN 1 D, ORAL
     Route: 048
     Dates: start: 20020601
  3. ATORVASTATIN (ATORVASTATIN) [Concomitant]
  4. ESTRADIOL [Concomitant]

REACTIONS (4)
  - ATRIAL FIBRILLATION [None]
  - MYOCARDIAL INFARCTION [None]
  - POST PROCEDURAL COMPLICATION [None]
  - WEIGHT DECREASED [None]
